FAERS Safety Report 12133202 (Version 4)
Quarter: 2017Q4

REPORT INFORMATION
  Report Type: Report from Study
  Country: GB (occurrence: GB)
  Receive Date: 20160301
  Receipt Date: 20171211
  Transmission Date: 20180320
  Serious: Yes (Death, Other)
  Sender: FDA-Public Use
  Company Number: GB-BEH-2016059435

PATIENT
  Age: 49 Year
  Sex: Male

DRUGS (1)
  1. RIASTAP [Suspect]
     Active Substance: FIBRINOGEN HUMAN
     Indication: TRAUMATIC HAEMORRHAGE
     Dosage: BATCH NO.:PACK.PRODUCT (C300500),FIBRINOGEN (65769911A,EXP.31MAY2019),HOWEVER PAT. NOT UNBLINDED
     Route: 042
     Dates: start: 20160220, end: 20160220

REACTIONS (1)
  - Haemorrhage [Fatal]

NARRATIVE: CASE EVENT DATE: 20160220
